FAERS Safety Report 9677634 (Version 3)
Quarter: 2013Q4

REPORT INFORMATION
  Report Type: Spontaneous
  Country: JP (occurrence: JP)
  Receive Date: 20131108
  Receipt Date: 20131219
  Transmission Date: 20140711
  Serious: Yes (Hospitalization, Other)
  Sender: FDA-Public Use
  Company Number: JP-JNJFOC-20131100642

PATIENT
  Age: 89 Year
  Sex: Male

DRUGS (6)
  1. RISPERDAL ORO-DISPERSIBLE TABLET [Suspect]
     Indication: DEMENTIA
     Route: 048
     Dates: start: 20130510, end: 20130930
  2. RISPERDAL ORO-DISPERSIBLE TABLET [Suspect]
     Indication: DEMENTIA
     Route: 048
     Dates: start: 20131010
  3. LEXOTAN [Suspect]
     Indication: PRODUCT USED FOR UNKNOWN INDICATION
     Route: 048
     Dates: start: 20130920, end: 20130930
  4. LEXOTAN [Suspect]
     Indication: PRODUCT USED FOR UNKNOWN INDICATION
     Route: 048
     Dates: start: 20130906, end: 20130919
  5. RIVASTIGMINE [Concomitant]
     Indication: DEMENTIA
     Route: 065
     Dates: start: 20130310, end: 20131010
  6. ROZEREM [Concomitant]
     Route: 065
     Dates: start: 20131010

REACTIONS (6)
  - Coma [Unknown]
  - Lung carcinoma cell type unspecified recurrent [Unknown]
  - Muscular weakness [Unknown]
  - Insomnia [Unknown]
  - Restlessness [Unknown]
  - Off label use [Unknown]
